FAERS Safety Report 13713238 (Version 1)
Quarter: 2017Q3

REPORT INFORMATION
  Report Type: Spontaneous
  Country: US (occurrence: US)
  Receive Date: 20170704
  Receipt Date: 20170704
  Transmission Date: 20171127
  Serious: Yes (Other)
  Sender: FDA-Public Use
  Company Number: US-TEVA-750812USA

PATIENT
  Age: 66 Year
  Sex: Female

DRUGS (7)
  1. MULTIVITAMIN [Concomitant]
     Active Substance: VITAMINS
  2. PREDNISONE. [Suspect]
     Active Substance: PREDNISONE
     Indication: COLITIS MICROSCOPIC
     Dosage: 10 TO 20 MG
     Route: 065
     Dates: start: 2009, end: 201610
  3. GLUCOSAMINE COMPLEX [Concomitant]
     Active Substance: GLUCOSAMINE\GLUCOSAMINE SULFATE
     Indication: ARTHRALGIA
  4. CURAMED CURCUMIN [Concomitant]
     Indication: SCIATIC NERVE INJURY
  5. NP THYROID [Concomitant]
     Active Substance: LEVOTHYROXINE\LIOTHYRONINE
  6. CALCIUM [Concomitant]
     Active Substance: CALCIUM
  7. VITAMIN B COMPLEX [Concomitant]
     Active Substance: CYANOCOBALAMIN\DEXPANTHENOL\NIACINAMIDE\PYRIDOXINE HYDROCHLORIDE\RIBOFLAVIN 5^-PHOSPHATE SODIUM\THIAMINE HYDROCHLORIDE\VITAMIN B COMPLEX

REACTIONS (6)
  - Immunosuppression [Unknown]
  - Osteoporosis [Not Recovered/Not Resolved]
  - Herpes simplex [Unknown]
  - Headache [Recovered/Resolved]
  - Arthralgia [Unknown]
  - Alopecia [Not Recovered/Not Resolved]
